FAERS Safety Report 16242726 (Version 2)
Quarter: 2019Q3

REPORT INFORMATION
  Report Type: Spontaneous
  Country: US (occurrence: US)
  Receive Date: 20190426
  Receipt Date: 20190704
  Transmission Date: 20191004
  Serious: No
  Sender: FDA-Public Use
  Company Number: US-TEVA-2019-US-1040816

PATIENT
  Sex: Female

DRUGS (2)
  1. LETROZOLE. [Suspect]
     Active Substance: LETROZOLE
     Dates: start: 20190125, end: 20190325
  2. IBRANCE [Suspect]
     Active Substance: PALBOCICLIB
     Dates: start: 201901

REACTIONS (3)
  - Product substitution issue [Unknown]
  - Alopecia [Recovered/Resolved]
  - Hair growth abnormal [Recovered/Resolved]

NARRATIVE: CASE EVENT DATE: 2019
